FAERS Safety Report 9811815 (Version 2)
Quarter: 2014Q1

REPORT INFORMATION
  Report Type: Spontaneous
  Country: FR (occurrence: FR)
  Receive Date: 20140110
  Receipt Date: 20140122
  Transmission Date: 20141002
  Serious: Yes (Hospitalization)
  Sender: FDA-Public Use
  Company Number: FR-ASTRAZENECA-2014SE00533

PATIENT
  Age: 32387 Day
  Sex: Male

DRUGS (4)
  1. CASODEX [Suspect]
     Route: 048
  2. INEXIUM [Suspect]
     Route: 048
     Dates: end: 20131023
  3. MYAMBUTOL [Suspect]
     Route: 048
     Dates: start: 20130928, end: 20131023
  4. RIFATER [Suspect]
     Route: 048
     Dates: start: 20130928

REACTIONS (3)
  - Neutropenia [Recovering/Resolving]
  - Thrombocytopenia [Not Recovered/Not Resolved]
  - Hepatocellular injury [Unknown]
